FAERS Safety Report 17622239 (Version 2)
Quarter: 2020Q2

REPORT INFORMATION
  Report Type: Spontaneous
  Country: DE (occurrence: DE)
  Receive Date: 20200403
  Receipt Date: 20200612
  Transmission Date: 20200713
  Serious: Yes (Hospitalization)
  Sender: FDA-Public Use
  Company Number: DE-TEVA-2020-DE-1217644

PATIENT
  Age: 88 Year
  Sex: Female
  Weight: 77 kg

DRUGS (9)
  1. NOVAMINSULFON [Concomitant]
     Active Substance: METAMIZOLE
     Indication: POLYNEUROPATHY
     Dosage: 1G   1-1-1-1
     Route: 048
  2. FENTANYL. [Concomitant]
     Active Substance: FENTANYL
     Indication: POLYNEUROPATHY
     Dosage: 25UG 3-PROOF
  3. KALINOR [Concomitant]
     Indication: HYPOKALAEMIA
     Dosage: 1 BT  1-0-1. 1 DOSAGE FORM
     Route: 048
  4. LEVOFLOXACIN. [Suspect]
     Active Substance: LEVOFLOXACIN
     Indication: PNEUMONIA
  5. PREGABALIN. [Concomitant]
     Active Substance: PREGABALIN
     Indication: POLYNEUROPATHY
     Dosage: 75MG 1-0-1
     Route: 048
  6. LEVOFLOXACIN. [Suspect]
     Active Substance: LEVOFLOXACIN
     Indication: URINARY TRACT INFECTION
     Dosage: 500MG
     Route: 048
  7. RAMIPRIL. [Concomitant]
     Active Substance: RAMIPRIL
     Indication: HYPERTENSION
     Dosage: 5MG  1-0-0
     Route: 048
  8. TORASEMID [Concomitant]
     Active Substance: TORSEMIDE
     Indication: CARDIAC FAILURE
     Dosage: 10MG  1-0-0
     Route: 048
  9. HCT [Concomitant]
     Active Substance: HYDROCHLOROTHIAZIDE
     Indication: CARDIAC FAILURE
     Dosage: 12,5MG  1-0-0
     Route: 048

REACTIONS (2)
  - Myoclonus [Not Recovered/Not Resolved]
  - Generalised tonic-clonic seizure [Not Recovered/Not Resolved]

NARRATIVE: CASE EVENT DATE: 20200214
